FAERS Safety Report 4339305-1 (Version None)
Quarter: 2004Q2

REPORT INFORMATION
  Report Type: 
  Country: None (occurrence: None)
  Receive Date: 20040414
  Receipt Date: 20040414
  Transmission Date: 20050107
  Serious: Yes (Other)
  Sender: FDA-Public Use
  Company Number: None

PATIENT
  Age: 33 Year
  Sex: Male
  Weight: 81.6475 kg

DRUGS (6)
  1. DURAGESIC [Suspect]
     Indication: MUSCULOSKELETAL DISORDER
     Dosage: 75 MCG/H EVERY 48 H TRANSDERMAL
     Route: 062
     Dates: start: 20040101, end: 20040406
  2. DURAGESIC [Suspect]
     Indication: PAIN
     Dosage: 75 MCG/H EVERY 48 H TRANSDERMAL
     Route: 062
     Dates: start: 20040101, end: 20040406
  3. DURAGESIC [Suspect]
     Indication: MUSCULOSKELETAL DISORDER
     Dosage: 75 MCG/H EVERY 48 H TRANSDERMAL
     Route: 062
     Dates: start: 20040101, end: 20040406
  4. DURAGESIC [Suspect]
     Indication: PAIN
     Dosage: 75 MCG/H EVERY 48 H TRANSDERMAL
     Route: 062
     Dates: start: 20040101, end: 20040406
  5. DURAGESIC [Suspect]
     Indication: MUSCULOSKELETAL DISORDER
     Dosage: 75 MCG/H EVERY 48 H TRANSDERMAL
     Route: 062
     Dates: start: 20040101, end: 20040406
  6. DURAGESIC [Suspect]
     Indication: PAIN
     Dosage: 75 MCG/H EVERY 48 H TRANSDERMAL
     Route: 062
     Dates: start: 20040101, end: 20040406

REACTIONS (2)
  - DRUG EFFECT DECREASED [None]
  - PHARMACEUTICAL PRODUCT COMPLAINT [None]
